FAERS Safety Report 6695351-4 (Version None)
Quarter: 2010Q2

REPORT INFORMATION
  Report Type: 
  Country: None (occurrence: None)
  Receive Date: 20100423
  Receipt Date: 20100423
  Transmission Date: 20101027
  Serious: No
  Sender: FDA-Public Use
  Company Number: None

PATIENT
  Age: 66 Year
  Sex: Female
  Weight: 74.8435 kg

DRUGS (1)
  1. TRAVATAN [Suspect]
     Indication: GLAUCOMA
     Dosage: ONE DROP IN EACH EYE EVERY NIGHT INTRAOCULAR
     Route: 031
     Dates: start: 20100322, end: 20100412

REACTIONS (2)
  - PRODUCT QUALITY ISSUE [None]
  - SENSATION OF FOREIGN BODY [None]
